FAERS Safety Report 9461203 (Version 1)
Quarter: 2013Q3

REPORT INFORMATION
  Report Type: Spontaneous
  Country: US (occurrence: None)
  Receive Date: 20130814
  Receipt Date: 20130814
  Transmission Date: 20140515
  Serious: Yes (Other)
  Sender: FDA-Public Use
  Company Number: None

PATIENT
  Age: 66 Year
  Sex: Male
  Weight: 190 kg

DRUGS (10)
  1. OXYCOD/APAP [Suspect]
     Indication: PAIN
     Dosage: 1-2 EVERY 4-6 HOURS  MOUTH
     Route: 048
     Dates: start: 20130531, end: 20130606
  2. OXYCOD/APAP [Suspect]
     Indication: HIP ARTHROPLASTY
     Dosage: 1-2 EVERY 4-6 HOURS  MOUTH
     Route: 048
     Dates: start: 20130531, end: 20130606
  3. LEXAPRO 10 FOREST LABORATORIES [Concomitant]
  4. METROPALOL [Concomitant]
  5. PROPAFENONE [Concomitant]
  6. AMLODAPINE [Concomitant]
  7. PANTOPRAZOLE [Concomitant]
  8. MULTI [Concomitant]
  9. VITAMIN D [Concomitant]
  10. ZYFLAMEND [Concomitant]

REACTIONS (3)
  - Blister [None]
  - Acute generalised exanthematous pustulosis [None]
  - Scar [None]
